FAERS Safety Report 5067379-1 (Version None)
Quarter: 2006Q3

REPORT INFORMATION
  Report Type: 
  Country: None (occurrence: None)
  Receive Date: 20060714
  Receipt Date: 20060606
  Transmission Date: 20061208
  Serious: No
  Sender: FDA-Public Use
  Company Number: 2006SP002329

PATIENT
  Age: 32 Year
  Sex: Female
  Weight: 53.5244 kg

DRUGS (3)
  1. LUNESTA [Suspect]
     Indication: INSOMNIA
     Dosage: HS; ORAL
     Route: 048
     Dates: start: 20060501, end: 20060604
  2. CELEXA [Concomitant]
  3. TOPIRAMATE [Concomitant]

REACTIONS (2)
  - HEADACHE [None]
  - MUSCLE TWITCHING [None]
